FAERS Safety Report 4305026-4 (Version None)
Quarter: 2004Q1

REPORT INFORMATION
  Report Type: 
  Country: None (occurrence: None)
  Receive Date: 20040226
  Receipt Date: 20040219
  Transmission Date: 20041129
  Serious: Yes (Other)
  Sender: FDA-Public Use
  Company Number: PHRM2004FR00937

PATIENT
  Age: 60 Year
  Sex: Male

DRUGS (2)
  1. LAMISIL [Suspect]
     Dosage: 250 MG, QD
     Route: 048
  2. REQUIP [Concomitant]
     Indication: PARKINSONISM
     Dosage: UNK, UNK
     Route: 048

REACTIONS (1)
  - SYNCOPE VASOVAGAL [None]
